FAERS Safety Report 13658496 (Version 6)
Quarter: 2018Q2

REPORT INFORMATION
  Report Type: Spontaneous
  Country: US (occurrence: US)
  Receive Date: 20170616
  Receipt Date: 20180430
  Transmission Date: 20180711
  Serious: Yes (Hospitalization)
  Sender: FDA-Public Use
  Company Number: US-PFIZER INC-2017261896

PATIENT
  Age: 59 Year
  Sex: Male
  Weight: 83.9 kg

DRUGS (7)
  1. SUTENT [Suspect]
     Active Substance: SUNITINIB MALATE
     Dosage: 37.5 MG, CYCLIC (D1-14 Q21 DAYS)
     Route: 048
     Dates: start: 20170520
  2. SUTENT [Suspect]
     Active Substance: SUNITINIB MALATE
     Dosage: 50 MG, UNK
     Dates: start: 20180425
  3. GEMZAR [Concomitant]
     Active Substance: GEMCITABINE HYDROCHLORIDE
     Dosage: UNK, CYCLIC (15 CYCLES)
     Route: 042
  4. SUTENT [Suspect]
     Active Substance: SUNITINIB MALATE
     Dosage: 50 MG, UNK
  5. SUTENT [Suspect]
     Active Substance: SUNITINIB MALATE
     Indication: RENAL CANCER
     Dosage: 37.5 MG, CYCLIC (D1-14 Q21 DAYS)
     Route: 048
     Dates: start: 20170520, end: 201706
  6. SUTENT [Suspect]
     Active Substance: SUNITINIB MALATE
     Indication: RENAL CANCER METASTATIC
     Dosage: 37.5 MG, CYCLIC (D1-14 Q21 DAYS)
     Route: 048
     Dates: start: 20170520
  7. SUTENT [Suspect]
     Active Substance: SUNITINIB MALATE
     Dosage: 37.5 MG, CYCLIC (D1-14 Q21 DAYS)
     Route: 048
     Dates: start: 20170520

REACTIONS (3)
  - Blood creatinine increased [Unknown]
  - Hypertension [Unknown]
  - Pyrexia [Unknown]

NARRATIVE: CASE EVENT DATE: 20170610
